FAERS Safety Report 15095049 (Version 4)
Quarter: 2018Q4

REPORT INFORMATION
  Report Type: Spontaneous
  Country: US (occurrence: US)
  Receive Date: 20180702
  Receipt Date: 20181009
  Transmission Date: 20190204
  Serious: No
  Sender: FDA-Public Use
  Company Number: US-LUPIN PHARMACEUTICALS INC.-2018-04627

PATIENT
  Age: 59 Year
  Sex: Female
  Weight: 70.75 kg

DRUGS (2)
  1. SOLOSEC [Suspect]
     Active Substance: SECNIDAZOLE
     Indication: VAGINAL INFECTION
     Dosage: 2 GM, QD
     Route: 048
     Dates: start: 20180517, end: 20180517
  2. SYNTHROID [Concomitant]
     Active Substance: LEVOTHYROXINE SODIUM
     Indication: HYPERTHYROIDISM
     Dosage: UNK
     Route: 065

REACTIONS (2)
  - Off label use [None]
  - Vomiting [Recovered/Resolved]

NARRATIVE: CASE EVENT DATE: 20180517
